FAERS Safety Report 4871470-X (Version None)
Quarter: 2005Q4

REPORT INFORMATION
  Report Type: 
  Country: None (occurrence: None)
  Receive Date: 20051229
  Receipt Date: 20051108
  Transmission Date: 20060501
  Serious: Yes (Death)
  Sender: FDA-Public Use
  Company Number: MK200512-0473-1

PATIENT
  Age: 32 Year

DRUGS (2)
  1. METHADONE HCL [Suspect]
     Dosage: PO
     Route: 048
     Dates: end: 20040101
  2. CLONAZEPAM [Suspect]
     Dosage: PO
     Route: 048
     Dates: end: 20040101

REACTIONS (4)
  - CARDIAC ARREST [None]
  - COMPLETED SUICIDE [None]
  - MULTIPLE DRUG OVERDOSE INTENTIONAL [None]
  - RESPIRATORY ARREST [None]
